FAERS Safety Report 24717417 (Version 2)
Quarter: 2024Q4

REPORT INFORMATION
  Report Type: Spontaneous
  Country: JP (occurrence: JP)
  Receive Date: 20241210
  Receipt Date: 20241213
  Transmission Date: 20250115
  Serious: Yes (Death)
  Sender: OTSUKA
  Company Number: JP-OTSUKA-2024_031923

PATIENT
  Age: 95 Year
  Sex: Female

DRUGS (4)
  1. SAMSCA [Suspect]
     Active Substance: TOLVAPTAN
     Indication: Cardiac failure
     Dosage: INCREASED TO 1 TABLET (7.5 MG)
     Route: 048
     Dates: start: 20241108
  2. SAMSCA [Suspect]
     Active Substance: TOLVAPTAN
     Indication: Fluid retention
     Dosage: A HALF TABLET
     Route: 048
     Dates: start: 20240927, end: 20241107
  3. AZOSEMIDE [Concomitant]
     Active Substance: AZOSEMIDE
     Indication: Product used for unknown indication
     Dosage: UNK
     Route: 065
  4. SPIRONOLACTONE [Concomitant]
     Active Substance: SPIRONOLACTONE
     Indication: Product used for unknown indication
     Dosage: UNK
     Route: 065

REACTIONS (4)
  - Marasmus [Fatal]
  - Oedema [Fatal]
  - Underdose [Fatal]
  - Therapeutic response shortened [Fatal]

NARRATIVE: CASE EVENT DATE: 20240927
